FAERS Safety Report 4449963-9 (Version None)
Quarter: 2004Q3

REPORT INFORMATION
  Report Type: 
  Country: None (occurrence: None)
  Receive Date: 20040915
  Receipt Date: 20030922
  Transmission Date: 20050211
  Serious: Yes (Other)
  Sender: FDA-Public Use
  Company Number: PHEH2003US08663

PATIENT
  Age: 56 Year
  Sex: Male

DRUGS (3)
  1. WARFARIN SODIUM [Concomitant]
  2. ZOMETA [Suspect]
     Indication: MULTIPLE MYELOMA
     Dosage: 4 MG EVERY MONTH
     Route: 042
     Dates: start: 20020801
  3. PREDNISONE [Concomitant]
     Dosage: 50 MG, QOD
     Dates: start: 19990101, end: 20030101

REACTIONS (4)
  - BONE DEBRIDEMENT [None]
  - FRACTURE [None]
  - OSTEONECROSIS [None]
  - TOOTH EXTRACTION [None]
